FAERS Safety Report 8622948-4 (Version None)
Quarter: 2012Q3

REPORT INFORMATION
  Report Type: 
  Country: None (occurrence: None)
  Receive Date: 20120827
  Receipt Date: 20120822
  Transmission Date: 20120928
  Serious: Yes (Other)
  Sender: FDA-Public Use
  Company Number: PHHY2012BR073151

PATIENT
  Sex: Male

DRUGS (2)
  1. AMLODOPINE BESYLATE AND VALSARTAN [Suspect]
     Indication: BLOOD PRESSURE
     Dosage: 1 DF (320/5MG), QD (MORNING)
  2. GALVUS [Suspect]
     Indication: DIABETES MELLITUS
     Dosage: 50 MG, QD (MORNING)

REACTIONS (2)
  - DYSPHAGIA [None]
  - CEREBROVASCULAR ACCIDENT [None]
